FAERS Safety Report 5637828-6 (Version None)
Quarter: 2008Q1

REPORT INFORMATION
  Report Type: 
  Country: None (occurrence: None)
  Receive Date: 20080225
  Receipt Date: 20080213
  Transmission Date: 20080703
  Serious: Yes (Other)
  Sender: FDA-Public Use
  Company Number: JP-SANOFI-SYNTHELABO-A01200713559

PATIENT
  Sex: Male
  Weight: 88 kg

DRUGS (6)
  1. OXALIPLATIN [Suspect]
     Indication: RECTAL CANCER
     Dosage: 75.8 MG/M2
     Route: 042
     Dates: start: 20071115, end: 20071115
  2. DEXAMETHASONE TAB [Concomitant]
     Route: 042
     Dates: start: 20061023, end: 20071115
  3. AZASETRON HYDROCHLORIDE [Concomitant]
     Route: 042
     Dates: start: 20061023, end: 20071115
  4. FLUOROURACIL [Concomitant]
     Dosage: 750 MG (378.8 MG/M23) IV BOLUS FOLLOWED BY 1000 MG (505.1 MG/M2) CONTINUOUS INFUSION ON D1+2
     Route: 042
     Dates: start: 20071115, end: 20071116
  5. ZOFRAN [Concomitant]
     Dosage: UNK
     Route: 048
  6. ISOVORIN [Suspect]
     Dosage: 175 MG
     Route: 042
     Dates: start: 20071026, end: 20071026

REACTIONS (3)
  - ANAPHYLACTOID REACTION [None]
  - JAUNDICE [None]
  - LIVER DISORDER [None]
